FAERS Safety Report 11964998 (Version 1)
Quarter: 2016Q1

REPORT INFORMATION
  Report Type: Spontaneous
  Country: None (occurrence: None)
  Receive Date: 20160125
  Receipt Date: 20160125
  Transmission Date: 20160526
  Serious: Yes (Other)
  Sender: FDA-Public Use
  Company Number: None

PATIENT
  Age: 12 Month
  Sex: Female
  Weight: 11.5 kg

DRUGS (12)
  1. ERYTHROMYCIN OPHTHALMIC [Concomitant]
  2. MORPHINE [Concomitant]
     Active Substance: MORPHINE
  3. ACETAMINOPHEN. [Concomitant]
     Active Substance: ACETAMINOPHEN
  4. MIDAZOLAM [Concomitant]
     Active Substance: MIDAZOLAM\MIDAZOLAM HYDROCHLORIDE
  5. DERMAPHOR DERMARITE [Suspect]
     Active Substance: MINERAL OIL\PARAFFIN\PETROLATUM
     Indication: SKIN DISORDER
     Route: 061
     Dates: start: 20151020, end: 20151029
  6. VASHE [Concomitant]
  7. IBUPROFEN. [Concomitant]
     Active Substance: IBUPROFEN
  8. ASCORBIC ACID. [Concomitant]
     Active Substance: ASCORBIC ACID
  9. ERTAPENEM [Concomitant]
     Active Substance: ERTAPENEM
  10. FENTANYL. [Concomitant]
     Active Substance: FENTANYL
  11. KETAMINE [Concomitant]
     Active Substance: KETAMINE
  12. SILVADENE [Concomitant]
     Active Substance: SILVER SULFADIAZINE

REACTIONS (1)
  - Secretion discharge [None]

NARRATIVE: CASE EVENT DATE: 20151020
